FAERS Safety Report 16649128 (Version 1)
Quarter: 2019Q3

REPORT INFORMATION
  Report Type: Spontaneous
  Country: US (occurrence: US)
  Receive Date: 20190730
  Receipt Date: 20190730
  Transmission Date: 20191004
  Serious: Yes (Other)
  Sender: FDA-Public Use
  Company Number: US-HORIZON-VIM-0293-2019

PATIENT
  Age: 52 Year
  Sex: Female

DRUGS (2)
  1. VIMOVO [Suspect]
     Active Substance: ESOMEPRAZOLE MAGNESIUM\NAPROXEN
     Indication: INFLAMMATION
     Dosage: 1 TAB BID WITH FOOD
     Route: 048
     Dates: end: 201907
  2. GABAPENTIN. [Concomitant]
     Active Substance: GABAPENTIN

REACTIONS (3)
  - Dizziness [Recovered/Resolved]
  - Spinal operation [Unknown]
  - Product administration error [Unknown]

NARRATIVE: CASE EVENT DATE: 201907
